FAERS Safety Report 23542585 (Version 1)
Quarter: 2024Q1

REPORT INFORMATION
  Report Type: Spontaneous
  Country: DE (occurrence: DE)
  Receive Date: 20240220
  Receipt Date: 20240220
  Transmission Date: 20240410
  Serious: Yes (Hospitalization, Other)
  Sender: FDA-Public Use
  Company Number: DE-SAMSUNG BIOEPIS-SB-2023-30791

PATIENT
  Age: 74 Year
  Sex: Male
  Weight: 90 kg

DRUGS (6)
  1. DOCETAXEL [Suspect]
     Active Substance: DOCETAXEL\DOCETAXEL ANHYDROUS
     Indication: Oesophageal adenocarcinoma
     Dosage: 105 MILLIGRAM, ( 50 MG/M2, IV, D1/D15/D29 AND D43 PRE-AND POST OP)
     Route: 042
     Dates: start: 20231018, end: 20231018
  2. LEUCOVORIN [Suspect]
     Active Substance: LEUCOVORIN\LEUCOVORIN CALCIUM
     Indication: Oesophageal adenocarcinoma
     Dosage: 420 MILLIGRAM, (200 MG/M2, IV, D1/D15/D29 AND D43 PRE-AND POST OP)
     Route: 042
     Dates: start: 20231018, end: 20231018
  3. OXALIPLATIN [Suspect]
     Active Substance: OXALIPLATIN
     Indication: Oesophageal adenocarcinoma
     Dosage: 178 MILLIGRAM, (85 MG/M2, IV, D1/D15/D29 AND D43 PRE-AND POST OP)
     Route: 042
     Dates: start: 20231018, end: 20231018
  4. FLUOROURACIL [Suspect]
     Active Substance: FLUOROURACIL
     Indication: Oesophageal adenocarcinoma
     Dosage: 5460 MILLIGRAM, (2600 MG/M2, IV, D1/D15/D29 AND D43 PRE-AND POST OP)
     Route: 042
     Dates: start: 20231018, end: 20231019
  5. ONTRUZANT [Suspect]
     Active Substance: TRASTUZUMAB-DTTB
     Indication: Oesophageal adenocarcinoma
     Dosage: 720 MILLIGRAM, (D1: 8MG/KG, IV; 6MG/KG IV D22/D43 PRE AND POST OP, AFTERWARDS 6MG/KG IV D1 Q3W)
     Route: 042
     Dates: start: 20231018, end: 20231018
  6. PEMBROLIZUMAB [Suspect]
     Active Substance: PEMBROLIZUMAB
     Indication: Oesophageal adenocarcinoma
     Dosage: 200 MILLIGRAM, (200MG FLAT DOSE, IV, D1/D22/D43 PRE-AND POST OP, AFTERWARDS D1 Q3W
     Route: 042
     Dates: start: 20231018, end: 20231018

REACTIONS (2)
  - Abdominal infection [Recovered/Resolved]
  - Product use in unapproved indication [Unknown]

NARRATIVE: CASE EVENT DATE: 20231106
